FAERS Safety Report 24936697 (Version 1)
Quarter: 2025Q1

REPORT INFORMATION
  Report Type: Spontaneous
  Country: US (occurrence: US)
  Receive Date: 20250206
  Receipt Date: 20250206
  Transmission Date: 20250408
  Serious: No
  Sender: CHATTEM
  Company Number: US-OPELLA-2025OHG003205

PATIENT
  Sex: Female

DRUGS (1)
  1. ALLEGRA ALLERGY [Suspect]
     Active Substance: FEXOFENADINE HYDROCHLORIDE
     Indication: Product used for unknown indication
     Route: 065

REACTIONS (4)
  - Incorrect product administration duration [Unknown]
  - Product taste abnormal [Unknown]
  - Suspected counterfeit product [Unknown]
  - No adverse event [Unknown]
